FAERS Safety Report 9988511 (Version 2)
Quarter: 2014Q2

REPORT INFORMATION
  Report Type: Report from Study
  Country: US (occurrence: US)
  Receive Date: 20140310
  Receipt Date: 20140417
  Transmission Date: 20141212
  Serious: Yes (Hospitalization)
  Sender: FDA-Public Use
  Company Number: US-ROCHE-1358536

PATIENT
  Sex: Male

DRUGS (16)
  1. XOLAIR [Suspect]
     Indication: ASTHMA
     Route: 058
     Dates: end: 20131017
  2. XOLAIR [Suspect]
     Indication: RHINITIS ALLERGIC
  3. XOLAIR [Suspect]
     Indication: CONJUNCTIVITIS ALLERGIC
  4. SYMBICORT [Concomitant]
     Indication: ASTHMA
     Dosage: 2 PUFFS
     Route: 065
  5. SINGULAIR [Concomitant]
     Indication: ASTHMA
     Route: 048
  6. PROZAC [Concomitant]
     Route: 065
  7. ALBUTEROL [Concomitant]
  8. ZYRTEC [Concomitant]
     Indication: HYPERSENSITIVITY
     Dosage: AS REQUIRED
     Route: 048
  9. PROAIR (UNITED STATES) [Concomitant]
     Indication: ASTHMA
     Dosage: 2 PUFFS AS REQUIRED
     Route: 065
  10. PREDNISONE [Concomitant]
     Route: 048
  11. VERAMYST [Concomitant]
  12. KENALOG (UNITED STATES) [Concomitant]
     Route: 065
  13. HYDROCORTISONE [Concomitant]
  14. BENADRYL (UNITED STATES) [Concomitant]
  15. EPIPEN 2-PAK [Concomitant]
  16. QVAR [Concomitant]

REACTIONS (15)
  - Asthma [Unknown]
  - Dyspnoea [Unknown]
  - Cough [Unknown]
  - Asthma [Unknown]
  - Swelling face [Unknown]
  - Nasopharyngitis [Unknown]
  - Oral mucosal eruption [Unknown]
  - Eyelid oedema [Unknown]
  - Hypersensitivity [Unknown]
  - Wheezing [Unknown]
  - Eczema [Unknown]
  - Oral disorder [Unknown]
  - Nasal polyps [Unknown]
  - Malaise [Unknown]
  - Urticaria [Unknown]
